FAERS Safety Report 6138178-4 (Version None)
Quarter: 2009Q1

REPORT INFORMATION
  Report Type: 
  Country: None (occurrence: None)
  Receive Date: 20090331
  Receipt Date: 20090326
  Transmission Date: 20090719
  Serious: Yes (Hospitalization)
  Sender: FDA-Public Use
  Company Number: US-ABBOTT-09P-163-0564924-00

PATIENT
  Sex: Female

DRUGS (4)
  1. LUPRON DEPOT [Suspect]
     Indication: UTERINE HAEMORRHAGE
     Route: 030
     Dates: start: 20040116, end: 20050201
  2. LUPRON DEPOT [Suspect]
     Route: 030
     Dates: start: 20060301
  3. LUPRON DEPOT [Suspect]
     Route: 030
  4. LUPRON DEPOT [Suspect]
     Route: 030

REACTIONS (5)
  - ALOPECIA [None]
  - HAEMATOCRIT DECREASED [None]
  - HAEMOGLOBIN DECREASED [None]
  - HORMONE LEVEL ABNORMAL [None]
  - UTERINE HAEMORRHAGE [None]
